FAERS Safety Report 7729384-3 (Version None)
Quarter: 2011Q3

REPORT INFORMATION
  Report Type: 
  Country: None (occurrence: None)
  Receive Date: 20110906
  Receipt Date: 20110825
  Transmission Date: 20111222
  Serious: Yes (Hospitalization)
  Sender: FDA-Public Use
  Company Number: JP-JNJFOC-20110900912

PATIENT
  Age: 13 Year
  Sex: Male
  Weight: 32.6 kg

DRUGS (3)
  1. TOPIRAMATE [Suspect]
     Indication: EPILEPSY
     Route: 048
  2. TOPIRAMATE [Suspect]
     Route: 048
     Dates: start: 20101220
  3. TOPIRAMATE [Suspect]
     Route: 048

REACTIONS (1)
  - CHOREA [None]
